FAERS Safety Report 6451931-2 (Version None)
Quarter: 2009Q4

REPORT INFORMATION
  Report Type: 
  Country: None (occurrence: None)
  Receive Date: 20091123
  Receipt Date: 20091109
  Transmission Date: 20100525
  Serious: Yes (Hospitalization, Other)
  Sender: FDA-Public Use
  Company Number: GB-GENENTECH-294302

PATIENT
  Age: 48 Year
  Sex: Female

DRUGS (6)
  1. TRASTUZUMAB [Suspect]
     Indication: BREAST CANCER
     Dosage: UNK
     Route: 065
     Dates: start: 20060101
  2. CAPECITABINE [Suspect]
     Indication: BREAST CANCER
     Dosage: UNK
     Route: 065
     Dates: start: 20070501
  3. PACLITAXEL [Suspect]
     Indication: BREAST CANCER
     Dosage: UNK
     Route: 065
  4. VINORELBINE [Suspect]
     Indication: BREAST CANCER
     Dosage: UNK
     Route: 065
     Dates: start: 20070601
  5. DOCETAXEL [Suspect]
     Indication: BREAST CANCER
     Dosage: UNK
     Route: 065
     Dates: start: 20071001
  6. LAPATINIB [Suspect]
     Indication: BREAST CANCER
     Dosage: UNK
     Route: 065
     Dates: start: 20080601

REACTIONS (9)
  - ABDOMINAL PAIN [None]
  - BREAST CANCER METASTATIC [None]
  - DISEASE PROGRESSION [None]
  - DRUG INTOLERANCE [None]
  - JOINT SWELLING [None]
  - LETHARGY [None]
  - METASTASES TO LIVER [None]
  - UTERINE HAEMORRHAGE [None]
  - VOMITING [None]
